FAERS Safety Report 4952981-5 (Version None)
Quarter: 2006Q1

REPORT INFORMATION
  Report Type: 
  Country: None (occurrence: None)
  Receive Date: 20060321
  Receipt Date: 20060303
  Transmission Date: 20060701
  Serious: Yes (Other)
  Sender: FDA-Public Use
  Company Number: S06-FRA-01227-01

PATIENT
  Sex: Male

DRUGS (2)
  1. MEMANTINE HCL [Suspect]
     Indication: APHASIA
  2. ARICEPT [Concomitant]

REACTIONS (2)
  - PROSTATIC SPECIFIC ANTIGEN INCREASED [None]
  - RENAL FAILURE [None]
